FAERS Safety Report 10706560 (Version 2)
Quarter: 2016Q4

REPORT INFORMATION
  Report Type: Spontaneous
  Country: TW (occurrence: TW)
  Receive Date: 20150113
  Receipt Date: 20161214
  Transmission Date: 20170206
  Serious: Yes (Hospitalization, Other)
  Sender: FDA-Public Use
  Company Number: TW-RANBAXY-2014R1-91324

PATIENT
  Age: 9 Month
  Sex: Male

DRUGS (1)
  1. IBUPROFEN. [Suspect]
     Active Substance: IBUPROFEN
     Indication: PYREXIA
     Dosage: 20 TO 30 MG/KG/D INTERMITTENTLY FOR A TOTAL OF 10 DAYS DURING 2 WEEK PERIOD
     Route: 065

REACTIONS (1)
  - Peptic ulcer perforation [Recovering/Resolving]
